FAERS Safety Report 8281291-6 (Version None)
Quarter: 2012Q2

REPORT INFORMATION
  Report Type: 
  Country: None (occurrence: None)
  Receive Date: 20120410
  Receipt Date: 20120410
  Transmission Date: 20120825
  Serious: No
  Sender: FDA-Public Use
  Company Number: None

PATIENT

DRUGS (2)
  1. DILANTIN [Suspect]
     Dosage: CAPSULE
     Route: 048
  2. DILANTIN [Suspect]
     Dosage: CAPSULE
     Route: 048

REACTIONS (2)
  - DRUG DISPENSING ERROR [None]
  - MEDICATION ERROR [None]
